FAERS Safety Report 4754633-3 (Version None)
Quarter: 2005Q3

REPORT INFORMATION
  Report Type: 
  Country: None (occurrence: None)
  Receive Date: 20050829
  Receipt Date: 20050823
  Transmission Date: 20060218
  Serious: Yes (Death)
  Sender: FDA-Public Use
  Company Number: DE-GLAXOSMITHKLINE-B0391640A

PATIENT

DRUGS (7)
  1. MELPHALAN [Suspect]
     Route: 042
  2. THIOTEPA [Suspect]
     Dosage: 600MGM2 PER DAY
     Route: 042
  3. EPIRUBICIN [Concomitant]
     Dosage: 600MGM2 PER DAY
     Route: 065
  4. PACLITAXEL [Concomitant]
     Dosage: 175MGM2 PER DAY
     Route: 065
  5. IFOSFAMIDE [Concomitant]
     Dosage: 2500MGM2 PER DAY
     Route: 065
  6. NEUPOGEN [Concomitant]
     Dosage: 5MCK PER DAY
     Route: 058
  7. STEM CELL TRANSPLANT [Concomitant]

REACTIONS (2)
  - NEUTROPENIA [None]
  - SEPSIS [None]
